FAERS Safety Report 8419061-8 (Version None)
Quarter: 2012Q2

REPORT INFORMATION
  Report Type: 
  Country: None (occurrence: None)
  Receive Date: 20120607
  Receipt Date: 20120605
  Transmission Date: 20120825
  Serious: Yes (Hospitalization, Other)
  Sender: FDA-Public Use
  Company Number: PHHY2012BR025701

PATIENT
  Age: 89 Year
  Sex: Female

DRUGS (2)
  1. DIOVAN [Suspect]
     Indication: CARDIAC DISORDER
     Dosage: 2 DF X (160 MG), TWO TABLETS A DAY
  2. CARVEDILOL [Concomitant]
     Indication: BLOOD PRESSURE
     Dosage: 0.5 DF, DAILY

REACTIONS (3)
  - VENOUS OCCLUSION [None]
  - PAIN IN EXTREMITY [None]
  - ARRHYTHMIA [None]
